FAERS Safety Report 19196010 (Version 1)
Quarter: 2021Q2

REPORT INFORMATION
  Report Type: Spontaneous
  Country: US (occurrence: US)
  Receive Date: 20210429
  Receipt Date: 20210429
  Transmission Date: 20210717
  Serious: Yes (Hospitalization, Other)
  Sender: FDA-Public Use
  Company Number: NVSC2021US092445

PATIENT
  Age: 23 Year
  Sex: Female

DRUGS (1)
  1. BUPROPION. [Suspect]
     Active Substance: BUPROPION
     Indication: DEPRESSION
     Dosage: 150 MG
     Route: 065

REACTIONS (4)
  - Cardiogenic shock [Recovering/Resolving]
  - Status epilepticus [Unknown]
  - Hallucination [Unknown]
  - Intentional overdose [Unknown]
